FAERS Safety Report 6495020-X (Version None)
Quarter: 2009Q4

REPORT INFORMATION
  Report Type: 
  Country: None (occurrence: None)
  Receive Date: 20091214
  Receipt Date: 20090421
  Transmission Date: 20100525
  Serious: No
  Sender: FDA-Public Use
  Company Number: US-BRISTOL-MYERS SQUIBB COMPANY-14596258

PATIENT
  Age: 9 Year
  Sex: Male

DRUGS (2)
  1. ABILIFY [Suspect]
     Indication: ATTENTION DEFICIT/HYPERACTIVITY DISORDER
     Dosage: 1 DF = 1/2 TAB; START DOSE: 2MG 1/2 TAB, INCREASED TO 15 MG 1/2 TAB.
     Dates: start: 20080414, end: 20090414
  2. ABILIFY [Suspect]
     Indication: BIPOLAR DISORDER
     Dosage: 1 DF = 1/2 TAB; START DOSE: 2MG 1/2 TAB, INCREASED TO 15 MG 1/2 TAB.
     Dates: start: 20080414, end: 20090414

REACTIONS (2)
  - MUSCLE TWITCHING [None]
  - TREMOR [None]
